FAERS Safety Report 24365425 (Version 2)
Quarter: 2025Q1

REPORT INFORMATION
  Report Type: Report from Study
  Country: DE (occurrence: DE)
  Receive Date: 20240926
  Receipt Date: 20250123
  Transmission Date: 20250408
  Serious: Yes (Hospitalization, Other)
  Sender: ROCHE
  Company Number: DE-ROCHE-3525872

PATIENT
  Age: 39 Year
  Sex: Female

DRUGS (2)
  1. OCREVUS [Suspect]
     Active Substance: OCRELIZUMAB
     Indication: Primary progressive multiple sclerosis
     Dosage: SUBSEQUENT INFUSION ON 22/FEB/2024
     Route: 042
     Dates: start: 20240208
  2. DALFAMPRIDINE [Concomitant]
     Active Substance: DALFAMPRIDINE
     Dosage: 1-0-1

REACTIONS (8)
  - Limb discomfort [Recovered/Resolved]
  - Fatigue [Recovered/Resolved]
  - Productive cough [Not Recovered/Not Resolved]
  - Conjunctivitis [Recovered/Resolved]
  - Nasopharyngitis [Recovered/Resolved]
  - Multiple sclerosis [Not Recovered/Not Resolved]
  - Pneumonia [Recovered/Resolved]
  - Paraesthesia [Not Recovered/Not Resolved]

NARRATIVE: CASE EVENT DATE: 20240208
